FAERS Safety Report 7889976-8 (Version None)
Quarter: 2011Q4

REPORT INFORMATION
  Report Type: 
  Country: None (occurrence: None)
  Receive Date: 20111103
  Receipt Date: 20111021
  Transmission Date: 20120403
  Serious: Yes (Other)
  Sender: FDA-Public Use
  Company Number: DE-CTI_01384_2011

PATIENT
  Sex: Female

DRUGS (4)
  1. CUROSURF [Suspect]
     Indication: NEONATAL RESPIRATORY DISTRESS SYNDROME
     Dosage: 240 MILLIGRAMS
     Route: 007
     Dates: start: 20110715, end: 20110715
  2. VALPROIC ACID [Concomitant]
     Dosage: DF
  3. AMPICILLIN [Concomitant]
     Dosage: DF
  4. CEFOTAXIME SODIUM [Concomitant]
     Dosage: DF

REACTIONS (2)
  - RESPIRATORY FAILURE [None]
  - C-REACTIVE PROTEIN INCREASED [None]
